FAERS Safety Report 25414308 (Version 3)
Quarter: 2025Q3

REPORT INFORMATION
  Report Type: Spontaneous
  Country: US (occurrence: US)
  Receive Date: 20250609
  Receipt Date: 20250908
  Transmission Date: 20251021
  Serious: No
  Sender: SANOFI AVENTIS
  Company Number: US-SA-2025SA162223

PATIENT
  Age: 15 Year
  Sex: Male
  Weight: 160 kg

DRUGS (15)
  1. FABRAZYME [Suspect]
     Active Substance: AGALSIDASE BETA
     Indication: Fabry^s disease
     Dosage: 80 MG, QOW
     Route: 042
     Dates: start: 202307
  2. EPINEPHRINE [Concomitant]
     Active Substance: EPINEPHRINE
  3. ACETAMINOPHEN [Concomitant]
     Active Substance: ACETAMINOPHEN
  4. SODIUM CHLORIDE [Concomitant]
     Active Substance: SODIUM CHLORIDE
  5. STERILE WATER [Concomitant]
     Active Substance: WATER
  6. TYLENOL [Concomitant]
     Active Substance: ACETAMINOPHEN
  7. SODIUM CHLORIDE [Concomitant]
     Active Substance: SODIUM CHLORIDE
  8. GABAPENTIN [Concomitant]
     Active Substance: GABAPENTIN
  9. VITAMIN D3 [Concomitant]
     Active Substance: CHOLECALCIFEROL
  10. MELATONIN [Concomitant]
     Active Substance: MELATONIN
  11. LIDOCAINE\PRILOCAINE [Concomitant]
     Active Substance: LIDOCAINE\PRILOCAINE
  12. VITAMIN B [Concomitant]
     Active Substance: VITAMIN B
  13. LINZESS [Concomitant]
     Active Substance: LINACLOTIDE
  14. DIPHENHYDRAMINE HYDROCHLORIDE [Concomitant]
     Active Substance: DIPHENHYDRAMINE HYDROCHLORIDE
  15. SOLU-MEDROL [Concomitant]
     Active Substance: METHYLPREDNISOLONE SODIUM SUCCINATE

REACTIONS (5)
  - Tremor [Unknown]
  - Sinusitis [Unknown]
  - Chest discomfort [Recovered/Resolved]
  - Chills [Recovered/Resolved]
  - Infusion site reaction [Unknown]

NARRATIVE: CASE EVENT DATE: 20250101
